FAERS Safety Report 21800514 (Version 1)
Quarter: 2022Q4

REPORT INFORMATION
  Report Type: Report from Study
  Country: BR (occurrence: BR)
  Receive Date: 20221230
  Receipt Date: 20221230
  Transmission Date: 20230113
  Serious: Yes (Other)
  Sender: FDA-Public Use
  Company Number: BR-JNJFOC-20221257180

PATIENT
  Age: 12 Year
  Sex: Female
  Weight: 28 kg

DRUGS (1)
  1. INFLIXIMAB [Suspect]
     Active Substance: INFLIXIMAB
     Indication: Crohn^s disease
     Route: 041
     Dates: start: 20211215

REACTIONS (1)
  - Crohn^s disease [Unknown]
